FAERS Safety Report 11896876 (Version 1)
Quarter: 2016Q1

REPORT INFORMATION
  Report Type: Spontaneous
  Country: US (occurrence: US)
  Receive Date: 20160107
  Receipt Date: 20160107
  Transmission Date: 20160526
  Serious: No
  Sender: FDA-Public Use
  Company Number: US-ALLERGAN-1502578US

PATIENT
  Age: 47 Year
  Sex: Female

DRUGS (2)
  1. ACZONE [Suspect]
     Active Substance: DAPSONE
     Indication: PRODUCT USED FOR UNKNOWN INDICATION
  2. RETINOL [Suspect]
     Active Substance: RETINOL
     Indication: PROPHYLAXIS
     Dosage: SINGLE PUMP IN THE EVENINGS, QD
     Route: 061
     Dates: start: 20150114, end: 20150127

REACTIONS (5)
  - Rash [Recovered/Resolved]
  - Skin irritation [Recovered/Resolved]
  - Swelling face [Recovered/Resolved]
  - Skin burning sensation [Recovered/Resolved]
  - Skin exfoliation [Recovered/Resolved]

NARRATIVE: CASE EVENT DATE: 20150114
